FAERS Safety Report 7840643-6 (Version None)
Quarter: 2011Q4

REPORT INFORMATION
  Report Type: 
  Country: None (occurrence: None)
  Receive Date: 20111025
  Receipt Date: 20111014
  Transmission Date: 20120403
  Serious: Yes (Hospitalization, Congenital Anomaly)
  Sender: FDA-Public Use
  Company Number: FR-BRISTOL-MYERS SQUIBB COMPANY-16176604

PATIENT
  Age: 1 Day
  Sex: Male
  Weight: 2 kg

DRUGS (3)
  1. GLUCOPHAGE [Suspect]
     Route: 015
     Dates: end: 20101015
  2. NOVORAPID [Suspect]
     Route: 064
     Dates: start: 20101016
  3. HUMULIN N [Suspect]
     Route: 015
     Dates: start: 20101016

REACTIONS (1)
  - FOETAL GROWTH RESTRICTION [None]
